FAERS Safety Report 6171259-8 (Version None)
Quarter: 2009Q2

REPORT INFORMATION
  Report Type: 
  Country: None (occurrence: None)
  Receive Date: 20090428
  Receipt Date: 20090428
  Transmission Date: 20091009
  Serious: No
  Sender: FDA-Public Use
  Company Number: None

PATIENT
  Age: 65 Year
  Sex: Female
  Weight: 57.1532 kg

DRUGS (1)
  1. PREDNISONE 10 MG TABLET MUTUAL PHARM C [Suspect]
     Indication: ANTIINFLAMMATORY THERAPY
     Dosage: 5-3DAYS/4-3DAYS/3-3DAYS/ETC. ONCE A DAY PO
     Route: 048
     Dates: start: 20090417, end: 20090419

REACTIONS (6)
  - ABASIA [None]
  - ARTHRALGIA [None]
  - BACK PAIN [None]
  - MOBILITY DECREASED [None]
  - MUSCULOSKELETAL PAIN [None]
  - PAIN IN EXTREMITY [None]
